FAERS Safety Report 18325552 (Version 4)
Quarter: 2020Q4

REPORT INFORMATION
  Report Type: Spontaneous
  Country: CA (occurrence: CA)
  Receive Date: 20200929
  Receipt Date: 20201130
  Transmission Date: 20210113
  Serious: Yes (Other)
  Sender: FDA-Public Use
  Company Number: CA-PFIZER INC-2020037138

PATIENT
  Age: 71 Year
  Sex: Female

DRUGS (4)
  1. TRAMADOL. [Concomitant]
     Active Substance: TRAMADOL
     Dosage: UNK
  2. PREDNISONE. [Concomitant]
     Active Substance: PREDNISONE
     Dosage: UNK
     Route: 065
  3. XELJANZ XR [Suspect]
     Active Substance: TOFACITINIB CITRATE
     Indication: RHEUMATOID ARTHRITIS
     Dosage: 11 MG, 1X/DAY
     Route: 048
     Dates: start: 202001, end: 2020
  4. PERINDOPRIL [Concomitant]
     Active Substance: PERINDOPRIL
     Indication: DIURETIC THERAPY
     Dosage: 8 MG, 1X/DAY
     Route: 065

REACTIONS (19)
  - Pain in extremity [Recovering/Resolving]
  - Gait disturbance [Unknown]
  - Therapeutic product effect incomplete [Not Recovered/Not Resolved]
  - Loss of personal independence in daily activities [Unknown]
  - Back pain [Not Recovered/Not Resolved]
  - Oropharyngeal pain [Unknown]
  - Joint swelling [Not Recovered/Not Resolved]
  - Blood cholesterol increased [Unknown]
  - Peripheral swelling [Not Recovered/Not Resolved]
  - Cystitis [Unknown]
  - Arthralgia [Not Recovered/Not Resolved]
  - Cough [Unknown]
  - Musculoskeletal stiffness [Recovering/Resolving]
  - Hypotension [Not Recovered/Not Resolved]
  - Fungal infection [Unknown]
  - Rhinorrhoea [Unknown]
  - Dizziness [Unknown]
  - Pain [Unknown]
  - Infection [Recovered/Resolved]

NARRATIVE: CASE EVENT DATE: 202001
